FAERS Safety Report 4353218-0 (Version None)
Quarter: 2004Q2

REPORT INFORMATION
  Report Type: 
  Country: None (occurrence: None)
  Receive Date: 20040504
  Receipt Date: 20040426
  Transmission Date: 20050107
  Serious: Yes (Hospitalization, Other)
  Sender: FDA-Public Use
  Company Number: A-CH2003-03963

PATIENT
  Age: 31 Year
  Sex: Female

DRUGS (11)
  1. TRACLEER [Suspect]
     Indication: PULMONARY HYPERTENSION
     Dosage: SEE IMAGE
     Route: 048
     Dates: start: 20030623, end: 20030720
  2. TRACLEER [Suspect]
     Indication: PULMONARY HYPERTENSION
     Dosage: SEE IMAGE
     Route: 048
     Dates: start: 20030721, end: 20030824
  3. TRACLEER [Suspect]
     Indication: PULMONARY HYPERTENSION
     Dosage: SEE IMAGE
     Route: 048
     Dates: start: 20030825, end: 20030904
  4. FLOLAN [Concomitant]
  5. COUMADIN [Concomitant]
  6. HEPARIN [Concomitant]
  7. LASIX [Concomitant]
  8. OXYGEN (OXYGEN) [Concomitant]
  9. PLAQUENIL [Concomitant]
  10. PREDNISONE TAB [Concomitant]
  11. OMEPRAZOLE [Concomitant]

REACTIONS (11)
  - ABORTION INDUCED [None]
  - AUTOIMMUNE DISORDER [None]
  - CARDIOMEGALY [None]
  - COMPLICATIONS OF MATERNAL EXPOSURE TO THERAPEUTIC DRUGS [None]
  - CONDITION AGGRAVATED [None]
  - COOMBS TEST POSITIVE [None]
  - HAEMOLYSIS [None]
  - HEPARIN-INDUCED THROMBOCYTOPENIA [None]
  - PREGNANCY [None]
  - PULMONARY HYPERTENSION [None]
  - THROMBOCYTOPENIA [None]
